FAERS Safety Report 11306374 (Version 1)
Quarter: 2015Q3

REPORT INFORMATION
  Report Type: Spontaneous
  Country: US (occurrence: US)
  Receive Date: 20150723
  Receipt Date: 20150723
  Transmission Date: 20151125
  Serious: No
  Sender: FDA-Public Use
  Company Number: US-GLAXOSMITHKLINE-US2015GSK089158

PATIENT
  Sex: Female

DRUGS (1)
  1. ADVAIR DISKUS [Suspect]
     Active Substance: FLUTICASONE PROPIONATE\SALMETEROL XINAFOATE
     Indication: ASTHMA
     Dosage: UNK
     Dates: start: 2002

REACTIONS (5)
  - Rash [Unknown]
  - Intra-uterine contraceptive device removal [Unknown]
  - Infection [Unknown]
  - Furuncle [Unknown]
  - Malaise [Unknown]

NARRATIVE: CASE EVENT DATE: 20140228
